FAERS Safety Report 9517802 (Version 2)
Quarter: 2013Q3

REPORT INFORMATION
  Report Type: Spontaneous
  Country: US (occurrence: US)
  Receive Date: 20130912
  Receipt Date: 20130919
  Transmission Date: 20140515
  Serious: Yes (Life-Threatening, Hospitalization, Other)
  Sender: FDA-Public Use
  Company Number: US-JNJFOC-20130902891

PATIENT
  Sex: Female
  Weight: 55 kg

DRUGS (12)
  1. TYLENOL EXTRA STRENGTH [Suspect]
     Indication: INFLUENZA
     Dosage: AS NEEDED EVERY 4-6 HOURS, 6-8 PILLS PER DAY
     Route: 065
     Dates: start: 20110302, end: 20110309
  2. TYLENOL EXTRA STRENGTH [Suspect]
     Indication: HEADACHE
     Dosage: AS NEEDED EVERY 4-6 HOURS, 6-8 PILLS PER DAY
     Route: 065
     Dates: start: 20110302, end: 20110309
  3. TYLENOL PM [Suspect]
     Indication: SLEEP DISORDER THERAPY
     Dosage: 2 AT NIGHT, AS NEEDED
     Dates: start: 20110302, end: 20110309
  4. LACTULOSE [Concomitant]
     Indication: PRODUCT USED FOR UNKNOWN INDICATION
     Route: 048
  5. ACETYLSALICYLIC ACID [Concomitant]
     Indication: HEADACHE
     Dosage: TAKEN FOR 10 DAYS
     Route: 065
     Dates: start: 20101229
  6. BIRTH CONTROL PILLS [Concomitant]
     Indication: MENSTRUAL DISORDER
     Dosage: YEARS TAKEN: DEC 2010
     Route: 048
  7. ACETYL CYSTEINE [Concomitant]
     Indication: PRODUCT USED FOR UNKNOWN INDICATION
     Route: 042
     Dates: end: 20110310
  8. FOMEPIZOLE [Concomitant]
     Indication: PRODUCT USED FOR UNKNOWN INDICATION
     Route: 042
     Dates: start: 20110310
  9. LEVOFLOXACIN [Concomitant]
     Indication: PRODUCT USED FOR UNKNOWN INDICATION
     Route: 041
  10. PANTOPRAZOLE SODIUM [Concomitant]
     Indication: PRODUCT USED FOR UNKNOWN INDICATION
     Route: 041
     Dates: end: 20110310
  11. PROTONIX [Concomitant]
     Indication: PRODUCT USED FOR UNKNOWN INDICATION
     Route: 042
     Dates: end: 20110310
  12. PHYTONADIONE [Concomitant]
     Indication: PRODUCT USED FOR UNKNOWN INDICATION
     Route: 058

REACTIONS (13)
  - Alcohol poisoning [Unknown]
  - Anaemia [Unknown]
  - Urinary tract infection [Unknown]
  - Acute hepatic failure [Unknown]
  - Hepatic encephalopathy [Unknown]
  - Hypophosphataemia [Unknown]
  - Toxicity to various agents [Unknown]
  - Overdose [Unknown]
  - Renal failure acute [Unknown]
  - Coagulopathy [Unknown]
  - Metabolic acidosis [Unknown]
  - Respiratory failure [Unknown]
  - Hypoglycaemia [Unknown]
